FAERS Safety Report 8313287-X (Version None)
Quarter: 2012Q2

REPORT INFORMATION
  Report Type: 
  Country: None (occurrence: None)
  Receive Date: 20120425
  Receipt Date: 20120425
  Transmission Date: 20120825
  Serious: No
  Sender: FDA-Public Use
  Company Number: None

PATIENT
  Sex: Female
  Weight: 67.586 kg

DRUGS (1)
  1. FENTANYL-100 [Suspect]
     Indication: BACK PAIN
     Dosage: 50 MCA/H EVERY 72 HRS
     Dates: start: 20120328, end: 20120410

REACTIONS (2)
  - PRODUCT ADHESION ISSUE [None]
  - DRUG INEFFECTIVE [None]
